FAERS Safety Report 15193408 (Version 2)
Quarter: 2018Q3

REPORT INFORMATION
  Report Type: Report from Study
  Country: FR (occurrence: FR)
  Receive Date: 20180725
  Receipt Date: 20180731
  Transmission Date: 20181010
  Serious: Yes (Other)
  Sender: FDA-Public Use
  Company Number: FR-AUROBINDO-AUR-APL-2018-037445

PATIENT
  Age: 45 Year
  Sex: Male

DRUGS (1)
  1. TERBINAFINE TABLET [Suspect]
     Active Substance: TERBINAFINE
     Indication: ONYCHOMYCOSIS
     Dosage: UNK
     Route: 048

REACTIONS (3)
  - Urinary retention [Recovered/Resolved]
  - Nausea [Unknown]
  - Diarrhoea [Unknown]
